FAERS Safety Report 20445864 (Version 1)
Quarter: 2022Q1

REPORT INFORMATION
  Report Type: Other
  Country: PK (occurrence: None)
  Receive Date: 20220208
  Receipt Date: 20220208
  Transmission Date: 20220423
  Serious: Yes (Other)
  Sender: FDA-Public Use
  Company Number: PK-ROCHE-2857777

PATIENT
  Age: 63 Year
  Sex: Male

DRUGS (2)
  1. AVASTIN [Suspect]
     Active Substance: BEVACIZUMAB
     Indication: Hepatocellular carcinoma
     Route: 042
     Dates: start: 20201217, end: 20220113
  2. TECENTRIQ [Suspect]
     Active Substance: ATEZOLIZUMAB
     Indication: Hepatocellular carcinoma
     Route: 042
     Dates: start: 20201217, end: 20220113

REACTIONS (4)
  - Weight fluctuation [Unknown]
  - Weight decreased [Unknown]
  - Disease progression [Unknown]
  - Asthenia [Unknown]
